FAERS Safety Report 10085880 (Version 2)
Quarter: 2014Q2

REPORT INFORMATION
  Report Type: Spontaneous
  Country: US (occurrence: US)
  Receive Date: 20140418
  Receipt Date: 20140418
  Transmission Date: 20141212
  Serious: Yes (Other)
  Sender: FDA-Public Use
  Company Number: US-CELGENEUS-163-POMAL-14031328

PATIENT
  Age: 65 Year
  Sex: Female

DRUGS (10)
  1. POMALYST [Suspect]
     Indication: PLASMA CELL MYELOMA
     Dosage: 3 MILLIGRAM
     Route: 048
     Dates: start: 20140116, end: 20140225
  2. IVIG [Suspect]
     Indication: PRODUCT USED FOR UNKNOWN INDICATION
     Route: 065
     Dates: start: 20120828
  3. DEXAMETHASONE [Concomitant]
     Indication: PLASMA CELL MYELOMA
     Route: 065
     Dates: start: 20120828
  4. DEXAMETHASONE [Concomitant]
     Route: 065
     Dates: start: 20130927
  5. DEXAMETHASONE [Concomitant]
     Route: 065
     Dates: start: 20131210
  6. DEXAMETHASONE [Concomitant]
     Route: 065
     Dates: start: 20140116, end: 20140225
  7. CIPRO [Concomitant]
     Indication: PROPHYLAXIS
     Route: 065
     Dates: start: 20120820
  8. BABY ASA [Concomitant]
     Indication: PRODUCT USED FOR UNKNOWN INDICATION
     Route: 065
     Dates: end: 20120827
  9. BABY ASA [Concomitant]
     Route: 065
     Dates: start: 20120926
  10. COUMADIN [Concomitant]
     Indication: DEEP VEIN THROMBOSIS
     Route: 065
     Dates: start: 201211

REACTIONS (3)
  - Subarachnoid haemorrhage [Unknown]
  - Pancytopenia [Unknown]
  - Posterior reversible encephalopathy syndrome [Unknown]
